FAERS Safety Report 10060713 (Version 3)
Quarter: 2014Q2

REPORT INFORMATION
  Report Type: Spontaneous
  Country: US (occurrence: US)
  Receive Date: 20140404
  Receipt Date: 20140425
  Transmission Date: 20141212
  Serious: Yes (Other)
  Sender: FDA-Public Use
  Company Number: US-TEVA-468278USA

PATIENT
  Age: 75 Year
  Sex: Female
  Weight: 63.56 kg

DRUGS (8)
  1. QVAR [Suspect]
     Indication: PNEUMONIA
     Route: 055
     Dates: start: 20140307
  2. PROAIR HFA [Suspect]
     Indication: WHEEZING
     Dosage: 2 PUFFS
     Dates: start: 20140307
  3. PREDNISONE [Concomitant]
     Indication: PNEUMONIA
  4. AUGMENTIN [Concomitant]
     Indication: PNEUMONIA
  5. SPIRIVA [Concomitant]
     Indication: BRONCHIAL DISORDER
  6. NASAL SALINE MIST [Concomitant]
     Indication: NASAL CONGESTION
     Route: 045
  7. AYER [Concomitant]
  8. DEPRESSION PILLS [Concomitant]

REACTIONS (11)
  - Pneumonia [Not Recovered/Not Resolved]
  - Insomnia [Not Recovered/Not Resolved]
  - Polydipsia [Not Recovered/Not Resolved]
  - Chest discomfort [Not Recovered/Not Resolved]
  - Cough [Not Recovered/Not Resolved]
  - Productive cough [Not Recovered/Not Resolved]
  - Epistaxis [Not Recovered/Not Resolved]
  - Nasal congestion [Not Recovered/Not Resolved]
  - Malaise [Not Recovered/Not Resolved]
  - Wheezing [Recovering/Resolving]
  - Dysphonia [Not Recovered/Not Resolved]
